FAERS Safety Report 18101528 (Version 2)
Quarter: 2021Q2

REPORT INFORMATION
  Report Type: Spontaneous
  Country: US (occurrence: US)
  Receive Date: 20200801
  Receipt Date: 20210629
  Transmission Date: 20210717
  Serious: Yes (Other)
  Sender: FDA-Public Use
  Company Number: US-TEVA-2020-US-1810665

PATIENT
  Age: 68 Year
  Sex: Male

DRUGS (2)
  1. METOPROLOL ACTAVIS [Suspect]
     Active Substance: METOPROLOL
     Indication: TACHYCARDIA PAROXYSMAL
     Route: 065
  2. TOPROL XL [Suspect]
     Active Substance: METOPROLOL SUCCINATE
     Route: 065

REACTIONS (4)
  - Urinary bladder suspension [Recovered/Resolved]
  - Prostate cancer [Unknown]
  - Bladder neck obstruction [Recovering/Resolving]
  - Erectile dysfunction [Not Recovered/Not Resolved]

NARRATIVE: CASE EVENT DATE: 201906
